FAERS Safety Report 10210329 (Version 1)
Quarter: 2014Q2

REPORT INFORMATION
  Report Type: Spontaneous
  Country: US (occurrence: US)
  Receive Date: 20140602
  Receipt Date: 20140602
  Transmission Date: 20141212
  Serious: No
  Sender: FDA-Public Use
  Company Number: US-PFIZER INC-2014146199

PATIENT
  Age: 71 Year
  Sex: Male
  Weight: 90.7 kg

DRUGS (3)
  1. ADVIL [Suspect]
     Indication: HEADACHE
     Dosage: 400 MG, THREE TIMES A DAY
     Dates: start: 201405, end: 20140525
  2. ADVIL [Suspect]
     Indication: PAIN IN EXTREMITY
  3. ADVIL [Suspect]
     Indication: BACK PAIN

REACTIONS (1)
  - Drug ineffective [Unknown]
